FAERS Safety Report 6179972-3 (Version None)
Quarter: 2009Q2

REPORT INFORMATION
  Report Type: 
  Country: None (occurrence: None)
  Receive Date: 20090501
  Receipt Date: 20090421
  Transmission Date: 20091009
  Serious: Yes (Hospitalization)
  Sender: FDA-Public Use
  Company Number: 234449K09USA

PATIENT
  Age: 56 Year
  Sex: Female

DRUGS (3)
  1. REBIF [Suspect]
     Indication: MULTIPLE SCLEROSIS
     Dosage: 44 MCG, 3 IN 1 WEEKS, SUBCUTANEOUS
     Route: 058
     Dates: start: 20080306
  2. NEURONTIN [Concomitant]
  3. UNSPECIFIED ANTIDEPRESSANT (ANPIDEPRESSANTS) [Concomitant]

REACTIONS (5)
  - DEPRESSION [None]
  - HALLUCINATION [None]
  - INJECTION SITE PAIN [None]
  - PAIN IN EXTREMITY [None]
  - URINARY TRACT INFECTION [None]
